FAERS Safety Report 17132865 (Version 1)
Quarter: 2019Q4

REPORT INFORMATION
  Report Type: Spontaneous
  Country: FR (occurrence: FR)
  Receive Date: 20191210
  Receipt Date: 20191210
  Transmission Date: 20200122
  Serious: Yes (Hospitalization, Other)
  Sender: FDA-Public Use
  Company Number: FR-AUROBINDO-AUR-APL-2019-103698

PATIENT
  Age: 54 Year
  Sex: Female

DRUGS (11)
  1. OLANZAPINE. [Suspect]
     Active Substance: OLANZAPINE
     Indication: HALLUCINATION
     Dosage: 40 MILLIGRAM, ONCE A DAY
     Route: 065
     Dates: start: 201901, end: 2019
  2. PREDNISOLONE. [Concomitant]
     Active Substance: PREDNISOLONE
     Indication: SYSTEMIC LUPUS ERYTHEMATOSUS
     Dosage: 5 MILLIGRAM, ONCE A DAY
     Route: 065
     Dates: start: 2015, end: 2019
  3. LOXAPAC [Suspect]
     Active Substance: LOXAPINE
     Indication: DELUSION
  4. CLONAZEPAM. [Suspect]
     Active Substance: CLONAZEPAM
     Indication: HALLUCINATION
     Dosage: 3.5 MILLIGRAM, ONCE A DAY
     Route: 065
     Dates: start: 201901, end: 2019
  5. LOXAPAC [Suspect]
     Active Substance: LOXAPINE
     Indication: MANIA
     Dosage: 50 MILLIGRAM, ONCE A DAY
     Route: 065
     Dates: start: 201901, end: 2019
  6. LOXAPAC [Suspect]
     Active Substance: LOXAPINE
     Indication: HALLUCINATION
  7. OLANZAPINE. [Suspect]
     Active Substance: OLANZAPINE
     Indication: DELUSION
  8. CLONAZEPAM. [Suspect]
     Active Substance: CLONAZEPAM
     Indication: DELUSION
  9. MYCOPHENOLATE MOFETIL. [Concomitant]
     Active Substance: MYCOPHENOLATE MOFETIL
     Indication: SYSTEMIC LUPUS ERYTHEMATOSUS
     Dosage: 2 GRAM, ONCE A DAY
     Route: 065
     Dates: start: 2015, end: 2019
  10. CLONAZEPAM. [Suspect]
     Active Substance: CLONAZEPAM
     Indication: MANIA
  11. OLANZAPINE. [Suspect]
     Active Substance: OLANZAPINE
     Indication: MANIA

REACTIONS (3)
  - Catatonia [Recovering/Resolving]
  - Psychotic disorder due to a general medical condition [Recovering/Resolving]
  - Acute respiratory distress syndrome [Unknown]

NARRATIVE: CASE EVENT DATE: 2019
